FAERS Safety Report 8032126-8 (Version None)
Quarter: 2012Q1

REPORT INFORMATION
  Report Type: 
  Country: None (occurrence: None)
  Receive Date: 20120109
  Receipt Date: 20111229
  Transmission Date: 20120608
  Serious: Yes (Hospitalization)
  Sender: FDA-Public Use
  Company Number: US-ASTRAZENECA-2012SE00037

PATIENT
  Age: 79 Year
  Sex: Female

DRUGS (3)
  1. ATACAND HCT [Suspect]
     Route: 048
  2. TOPROL-XL [Suspect]
     Route: 048
  3. ATACAND [Concomitant]
     Route: 048

REACTIONS (4)
  - APHAGIA [None]
  - NERVE COMPRESSION [None]
  - MYALGIA [None]
  - DEHYDRATION [None]
